FAERS Safety Report 11050238 (Version 3)
Quarter: 2015Q2

REPORT INFORMATION
  Report Type: Spontaneous
  Country: NL (occurrence: NL)
  Receive Date: 20150421
  Receipt Date: 20150511
  Transmission Date: 20150821
  Serious: Yes (Other)
  Sender: FDA-Public Use
  Company Number: NL-TAKEDA-2015TJP006606

PATIENT
  Age: 20 Year
  Sex: Male

DRUGS (5)
  1. BRINTELLIX [Suspect]
     Active Substance: VORTIOXETINE HYDROBROMIDE
     Indication: DEPRESSION
     Dosage: 10 MG, QD
     Route: 048
     Dates: start: 20150220, end: 20150308
  2. LYRICA [Concomitant]
     Active Substance: PREGABALIN
     Indication: TENSION
     Dosage: 150 MG, TID
  3. LYRICA [Concomitant]
     Active Substance: PREGABALIN
     Indication: ANXIETY
  4. OXAZEPAM. [Concomitant]
     Active Substance: OXAZEPAM
     Indication: PRODUCT USED FOR UNKNOWN INDICATION
     Dosage: 10 MG, 3 IN 1(AS NECESSARY)
     Route: 065
  5. BRINTELLIX [Suspect]
     Active Substance: VORTIOXETINE HYDROBROMIDE
     Indication: PERSONALITY DISORDER
     Dosage: 20 MG, QD
     Route: 048
     Dates: start: 20150309, end: 20150319

REACTIONS (2)
  - Emotional distress [Recovering/Resolving]
  - Suicidal ideation [Recovered/Resolved]

NARRATIVE: CASE EVENT DATE: 201504
